FAERS Safety Report 7213803-5 (Version None)
Quarter: 2011Q1

REPORT INFORMATION
  Report Type: 
  Country: None (occurrence: None)
  Receive Date: 20110106
  Receipt Date: 20101228
  Transmission Date: 20110831
  Serious: Yes (Death, Hospitalization, Disabling)
  Sender: FDA-Public Use
  Company Number: JP-SANOFI-AVENTIS-2010SA000252

PATIENT
  Age: 85 Year
  Sex: Male
  Weight: 72.5 kg

DRUGS (8)
  1. ASPIRIN [Concomitant]
     Route: 065
     Dates: start: 20061206, end: 20100131
  2. HEPARIN [Concomitant]
     Dosage: DOSE:10000 UNIT(S)
     Route: 042
     Dates: start: 20091105, end: 20091105
  3. BASEN [Concomitant]
     Route: 048
     Dates: end: 20100131
  4. DIOVANE [Concomitant]
     Route: 048
     Dates: end: 20100131
  5. CRESTOR [Concomitant]
     Route: 048
     Dates: end: 20100131
  6. PLAVIX [Suspect]
     Route: 048
     Dates: start: 20091009, end: 20100131
  7. ADALAT CC [Concomitant]
     Route: 048
     Dates: end: 20100131
  8. AMARYL [Concomitant]
     Route: 048
     Dates: end: 20100131

REACTIONS (3)
  - INTRACARDIAC THROMBUS [None]
  - SUBDURAL HAEMATOMA [None]
  - CEREBRAL INFARCTION [None]
